FAERS Safety Report 5038865-5 (Version None)
Quarter: 2006Q2

REPORT INFORMATION
  Report Type: 
  Country: None (occurrence: None)
  Receive Date: 20060628
  Receipt Date: 20060628
  Transmission Date: 20061013
  Serious: No
  Sender: FDA-Public Use
  Company Number: None

PATIENT
  Age: 67 Year
  Sex: Female
  Weight: 82.5 kg

DRUGS (1)
  1. LENALIDOMIDE 10 MG -CELGENE [Suspect]
     Indication: 5Q-SYNDROME
     Dosage: 10 MG  ONCE DAILY QD X 21 DAYS ON A 28-DAY CYCLE PO
     Route: 048
     Dates: start: 20060307

REACTIONS (2)
  - NEUTROPENIA [None]
  - THROMBOCYTOPENIA [None]
